FAERS Safety Report 6719958-0 (Version None)
Quarter: 2010Q2

REPORT INFORMATION
  Report Type: 
  Country: None (occurrence: None)
  Receive Date: 20100511
  Receipt Date: 20100505
  Transmission Date: 20101027
  Serious: Yes (Other)
  Sender: FDA-Public Use
  Company Number: TR-ELI_LILLY_AND_COMPANY-TR201005000830

PATIENT
  Age: 35 Year
  Sex: Female

DRUGS (5)
  1. HUMULIN R [Suspect]
     Indication: GESTATIONAL DIABETES
     Dosage: 35 IU, EACH MORNING
     Route: 058
     Dates: end: 20100405
  2. HUMULIN R [Suspect]
     Dosage: 35 IU, OTHER
     Route: 058
     Dates: end: 20100405
  3. HUMULIN R [Suspect]
     Dosage: 50 IU, EACH EVENING
     Route: 058
     Dates: end: 20100405
  4. HUMULIN N [Suspect]
     Indication: GESTATIONAL DIABETES
     Dosage: 45 U, DAILY (1/D)
     Route: 058
     Dates: end: 20100405
  5. VITAMINS [Concomitant]
     Dosage: UNK, DAILY (1/D)

REACTIONS (2)
  - ABORTION SPONTANEOUS [None]
  - DRUG EXPOSURE DURING PREGNANCY [None]
